FAERS Safety Report 18948256 (Version 3)
Quarter: 2021Q1

REPORT INFORMATION
  Report Type: Spontaneous
  Country: GB (occurrence: GB)
  Receive Date: 20210227
  Receipt Date: 20210320
  Transmission Date: 20210420
  Serious: Yes (Other)
  Sender: FDA-Public Use
  Company Number: GB-CELLTRION INC.-2021GB001901

PATIENT

DRUGS (1)
  1. REMSIMA [Suspect]
     Active Substance: INFLIXIMAB
     Indication: CROHN^S DISEASE
     Dosage: 120 MG, EVERY 2 WEEKS
     Route: 058
     Dates: start: 20210112

REACTIONS (3)
  - Rectal haemorrhage [Unknown]
  - Haemorrhoids [Unknown]
  - Crohn^s disease [Unknown]
